FAERS Safety Report 4382124-0 (Version None)
Quarter: 2004Q2

REPORT INFORMATION
  Report Type: 
  Country: None (occurrence: None)
  Receive Date: 20040603
  Receipt Date: 20030512
  Transmission Date: 20050107
  Serious: Yes (Hospitalization)
  Sender: FDA-Public Use
  Company Number: 200312567US

PATIENT
  Age: 79 Year
  Sex: Female
  Weight: 55 kg

DRUGS (7)
  1. LOVENOX [Suspect]
     Indication: PULMONARY EMBOLISM
     Dosage: 68 MG QD SC
     Route: 058
     Dates: start: 20030315, end: 20030317
  2. WARFARIN SODIUM [Concomitant]
  3. CALCITATONIN, SALMON (MIACALCIN) [Concomitant]
  4. NORVASC [Concomitant]
  5. ROSIGLITAZONE MELEATE (AVANDIA) [Concomitant]
  6. REMERON [Concomitant]
  7. FRAGMIN [Concomitant]

REACTIONS (2)
  - HAEMOGLOBIN DECREASED [None]
  - OPERATIVE HAEMORRHAGE [None]
